FAERS Safety Report 23512349 (Version 1)
Quarter: 2024Q1

REPORT INFORMATION
  Report Type: Spontaneous
  Country: JP (occurrence: None)
  Receive Date: 20240212
  Receipt Date: 20240212
  Transmission Date: 20240410
  Serious: Yes (Death, Hospitalization, Other)
  Sender: FDA-Public Use
  Company Number: 2024A034540

PATIENT
  Age: 70 Year
  Sex: Male

DRUGS (2)
  1. IMFINZI [Suspect]
     Active Substance: DURVALUMAB
     Indication: Hepatocellular carcinoma
     Dosage: DOSE UNKNOWN
     Route: 041
     Dates: start: 202309, end: 202309
  2. IMJUDO [Suspect]
     Active Substance: TREMELIMUMAB\TREMELIMUMAB-ACTL
     Indication: Hepatocellular carcinoma
     Dosage: DOSE UNKNOWN
     Route: 041
     Dates: start: 202309, end: 202309

REACTIONS (6)
  - Asthenia [Fatal]
  - Diarrhoea [Unknown]
  - Sepsis [Unknown]
  - Eastern Cooperative Oncology Group performance status worsened [Unknown]
  - Blood creatinine increased [Unknown]
  - C-reactive protein increased [Unknown]

NARRATIVE: CASE EVENT DATE: 20230101
